FAERS Safety Report 22180159 (Version 2)
Quarter: 2023Q2

REPORT INFORMATION
  Report Type: Spontaneous
  Country: US (occurrence: US)
  Receive Date: 20230406
  Receipt Date: 20230531
  Transmission Date: 20230721
  Serious: No
  Sender: FDA-Public Use
  Company Number: US-LUPIN PHARMACEUTICALS INC.-2023-02556

PATIENT

DRUGS (1)
  1. TESTOSTERONE [Suspect]
     Active Substance: TESTOSTERONE
     Indication: Product used for unknown indication
     Dosage: UNK (DOSE WAS ONCE A DAY, ONE TIME UNDER EACH ARM)
     Route: 065

REACTIONS (4)
  - Device delivery system issue [Unknown]
  - Incorrect dose administered by device [Unknown]
  - Product administration error [Unknown]
  - No adverse event [Unknown]
